FAERS Safety Report 7417614-7 (Version None)
Quarter: 2011Q2

REPORT INFORMATION
  Report Type: 
  Country: None (occurrence: None)
  Receive Date: 20110415
  Receipt Date: 20110411
  Transmission Date: 20111010
  Serious: Yes (Other)
  Sender: FDA-Public Use
  Company Number: US-GENZYME-FLUD-1001065

PATIENT
  Age: 64 Year

DRUGS (11)
  1. FLUDARA [Suspect]
     Indication: MYELODYSPLASTIC SYNDROME
     Dosage: 30 MG/M2, QDX4
     Route: 065
  2. DECITABINE [Suspect]
     Dosage: 20 MG/M2, QDX5
     Route: 042
  3. DECITABINE [Suspect]
     Dosage: 20 MG/M2, QDX5
     Route: 042
  4. DECITABINE [Suspect]
     Dosage: 20 MG/M2, QDX5
     Route: 042
  5. MELPHALAN [Suspect]
     Indication: MYELODYSPLASTIC SYNDROME
     Dosage: 140 MG/M2, UNK
     Route: 065
  6. METHOTREXATE [Concomitant]
     Indication: PROPHYLAXIS AGAINST GRAFT VERSUS HOST DISEASE
     Dosage: UNK
     Route: 065
  7. FLUDARA [Suspect]
     Indication: STEM CELL TRANSPLANT
  8. MELPHALAN [Suspect]
     Indication: STEM CELL TRANSPLANT
  9. DECITABINE [Suspect]
     Indication: MYELODYSPLASTIC SYNDROME
     Dosage: 20 MG/M2, QDX5
     Route: 042
  10. DECITABINE [Suspect]
     Dosage: 20 MG/M2, QDX5
     Route: 042
  11. TACROLIMUS [Concomitant]
     Indication: PROPHYLAXIS AGAINST GRAFT VERSUS HOST DISEASE
     Dosage: UNK
     Route: 065

REACTIONS (3)
  - CHRONIC GRAFT VERSUS HOST DISEASE [None]
  - ACUTE GRAFT VERSUS HOST DISEASE IN INTESTINE [None]
  - NAUSEA [None]
